FAERS Safety Report 11637883 (Version 1)
Quarter: 2015Q4

REPORT INFORMATION
  Report Type: Spontaneous
  Country: US (occurrence: US)
  Receive Date: 20151016
  Receipt Date: 20151016
  Transmission Date: 20160304
  Serious: No
  Sender: FDA-Public Use
  Company Number: US-AMNEAL PHARMACEUTICALS-2015AMN00124

PATIENT
  Sex: Female

DRUGS (4)
  1. BENADRYL [Concomitant]
     Active Substance: DIPHENHYDRAMINE HYDROCHLORIDE
  2. ASPIRIN. [Concomitant]
     Active Substance: ASPIRIN
  3. IBUPROFEN. [Concomitant]
     Active Substance: IBUPROFEN
  4. HYDROCODONE AND ACETAMINOPHEN [Suspect]
     Active Substance: ACETAMINOPHEN\HYDROCODONE
     Dosage: UNK
     Route: 048

REACTIONS (4)
  - Rash [Unknown]
  - Urticaria [Unknown]
  - Drug ineffective [Unknown]
  - Pruritus [Unknown]
